FAERS Safety Report 6435016-7 (Version None)
Quarter: 2009Q4

REPORT INFORMATION
  Report Type: 
  Country: None (occurrence: None)
  Receive Date: 20091110
  Receipt Date: 20091029
  Transmission Date: 20100525
  Serious: Yes (Hospitalization)
  Sender: FDA-Public Use
  Company Number: PHHY2009ZA47115

PATIENT
  Age: 60 Year
  Sex: Female

DRUGS (4)
  1. VALSARTAN AND HYDROCHLOROTHIAZIDE [Suspect]
     Dosage: UNK
     Dates: start: 20090310
  2. GLUCOPHAGE [Concomitant]
     Indication: DIABETES MELLITUS
     Dosage: UNK
  3. DANAZOL [Concomitant]
     Indication: HORMONE REPLACEMENT THERAPY
     Dosage: UNK
  4. FEMARA [Concomitant]
     Indication: HORMONE REPLACEMENT THERAPY
     Dosage: UNK

REACTIONS (1)
  - KNEE OPERATION [None]
